FAERS Safety Report 8128703-6 (Version None)
Quarter: 2012Q1

REPORT INFORMATION
  Report Type: 
  Country: None (occurrence: None)
  Receive Date: 20120210
  Receipt Date: 20110118
  Transmission Date: 20120608
  Serious: No
  Sender: FDA-Public Use
  Company Number: US-BRISTOL-MYERS SQUIBB COMPANY-15480148

PATIENT
  Age: 68 Year
  Sex: Female

DRUGS (1)
  1. ORENCIA [Suspect]
     Indication: ARTHRITIS
     Dosage: WILL RESTART IN JAN2011
     Route: 042
     Dates: start: 20100901

REACTIONS (1)
  - IMPAIRED HEALING [None]
